FAERS Safety Report 26167632 (Version 1)
Quarter: 2025Q4

REPORT INFORMATION
  Report Type: Spontaneous
  Country: US (occurrence: US)
  Receive Date: 20251217
  Receipt Date: 20251217
  Transmission Date: 20260119
  Serious: Yes (Hospitalization)
  Sender: PACIRA
  Company Number: US-ORG100016242-2025000151

PATIENT
  Age: 79 Year
  Sex: Female

DRUGS (2)
  1. EXPAREL [Suspect]
     Active Substance: BUPIVACAINE
     Indication: Knee arthroplasty
     Route: 050
     Dates: start: 20250416, end: 20250416
  2. BUPIVACAINE HYDROCHLORIDE [Suspect]
     Active Substance: BUPIVACAINE HYDROCHLORIDE
     Indication: Knee arthroplasty
     Route: 050
     Dates: start: 20250416, end: 20250416

REACTIONS (3)
  - Local anaesthetic systemic toxicity [Recovered/Resolved]
  - Seizure [Recovered/Resolved]
  - Incorrect route of product administration [Unknown]

NARRATIVE: CASE EVENT DATE: 20250416
